FAERS Safety Report 23646637 (Version 2)
Quarter: 2024Q2

REPORT INFORMATION
  Report Type: Report from Study
  Country: US (occurrence: US)
  Receive Date: 20240319
  Receipt Date: 20240520
  Transmission Date: 20240716
  Serious: No
  Sender: FDA-Public Use
  Company Number: US-ABBVIE-5680592

PATIENT
  Sex: Female

DRUGS (2)
  1. SKYRIZI [Suspect]
     Active Substance: RISANKIZUMAB-RZAA
     Indication: Psoriasis
     Dosage: DRUG END DATE: 2023
     Route: 058
     Dates: start: 20230821
  2. SKYRIZI [Suspect]
     Active Substance: RISANKIZUMAB-RZAA
     Route: 058
     Dates: start: 20231010

REACTIONS (6)
  - Tooth dislocation [Not Recovered/Not Resolved]
  - Gingival pain [Not Recovered/Not Resolved]
  - Tooth infection [Recovering/Resolving]
  - Dental restoration failure [Not Recovered/Not Resolved]
  - Eye pruritus [Unknown]
  - Rash papular [Recovered/Resolved]
